FAERS Safety Report 23410355 (Version 1)
Quarter: 2024Q1

REPORT INFORMATION
  Report Type: Other
  Country: US (occurrence: US)
  Receive Date: 20240117
  Receipt Date: 20240117
  Transmission Date: 20240409
  Serious: Yes (Other)
  Sender: FDA-Public Use
  Company Number: US-Stemline Therapeutics, Inc.-2024ST000270

PATIENT
  Age: 70 Year
  Sex: Female

DRUGS (1)
  1. ORSERDU [Suspect]
     Active Substance: ELACESTRANT
     Indication: Product used for unknown indication
     Dosage: 345 MG ONCE DAILY
     Route: 048

REACTIONS (2)
  - Illness [Not Recovered/Not Resolved]
  - Hospice care [Not Recovered/Not Resolved]
